FAERS Safety Report 8996698 (Version 1)
Quarter: 2013Q1

REPORT INFORMATION
  Report Type: Spontaneous
  Country: US (occurrence: US)
  Receive Date: 20130104
  Receipt Date: 20130104
  Transmission Date: 20140127
  Serious: Yes (Other)
  Sender: FDA-Public Use
  Company Number: PHEH2012US025611

PATIENT
  Sex: Female

DRUGS (7)
  1. DIOVAN [Suspect]
  2. LISINOPRIL [Suspect]
  3. CRESTOR [Concomitant]
  4. NORVASC [Concomitant]
  5. METOPROLOL [Concomitant]
  6. PREDNISONE [Concomitant]
  7. ASPIRIN [Concomitant]
     Dosage: 325 MG, UNK

REACTIONS (4)
  - Cerebrovascular accident [Unknown]
  - Heart rate irregular [Unknown]
  - Malaise [Unknown]
  - Drug hypersensitivity [Unknown]
